FAERS Safety Report 25952599 (Version 1)
Quarter: 2025Q4

REPORT INFORMATION
  Report Type: Spontaneous
  Country: US (occurrence: US)
  Receive Date: 20251023
  Receipt Date: 20251023
  Transmission Date: 20260118
  Serious: No
  Sender: BOEHRINGER INGELHEIM
  Company Number: US-Komodo Health-a23aa00000B0SyrAAF

PATIENT
  Age: 85 Year
  Sex: Male

DRUGS (1)
  1. JARDIANCE [Suspect]
     Active Substance: EMPAGLIFLOZIN
     Indication: Product used for unknown indication
     Dosage: 10MG
     Dates: start: 202508, end: 202510

REACTIONS (1)
  - Rash pustular [Unknown]

NARRATIVE: CASE EVENT DATE: 20251001
